FAERS Safety Report 5654510-X (Version None)
Quarter: 2008Q1

REPORT INFORMATION
  Report Type: 
  Country: None (occurrence: None)
  Receive Date: 20080307
  Receipt Date: 20080205
  Transmission Date: 20080703
  Serious: No
  Sender: FDA-Public Use
  Company Number: US-BAYER-200712735BWH

PATIENT
  Age: 64 Year
  Sex: Male
  Weight: 86 kg

DRUGS (2)
  1. LEVITRA [Suspect]
     Indication: ERECTILE DYSFUNCTION
     Dosage: TOTAL DAILY DOSE: 20 MG  UNIT DOSE: 20 MG
     Route: 048
     Dates: start: 20070801
  2. LIPITOR [Concomitant]
     Dosage: AS USED: 20 MG
     Route: 048
     Dates: start: 20050101

REACTIONS (8)
  - ARTHRALGIA [None]
  - ERECTILE DYSFUNCTION [None]
  - FLUSHING [None]
  - HEADACHE [None]
  - NASAL CONGESTION [None]
  - OCULAR HYPERAEMIA [None]
  - STOMACH DISCOMFORT [None]
  - TOOTH INFECTION [None]
